FAERS Safety Report 7688986-3 (Version None)
Quarter: 2011Q3

REPORT INFORMATION
  Report Type: 
  Country: None (occurrence: None)
  Receive Date: 20110817
  Receipt Date: 20110812
  Transmission Date: 20111222
  Serious: Yes (Death, Hospitalization, Other)
  Sender: FDA-Public Use
  Company Number: PHEH2009US02400

PATIENT
  Sex: Female

DRUGS (19)
  1. PLETAL [Concomitant]
     Dosage: 100 MG, BID
  2. VICODIN [Concomitant]
  3. LETROZOLE [Concomitant]
     Dosage: 2.5 MG, QD
  4. CIPROFLOXACIN [Concomitant]
     Dosage: 750 MG, BID
     Route: 048
  5. ZOMETA [Suspect]
  6. LEVAQUIN [Concomitant]
     Dosage: 500 MG, QD
  7. ASPIRIN [Concomitant]
     Dosage: 81 MG, QD
  8. NORVASC [Concomitant]
     Dosage: 10 MG, QD
  9. DYAZIDE [Concomitant]
  10. CLONIDINE [Concomitant]
     Dosage: 0.1 MG, BID
  11. PAMIDRONATE DISODIUM [Suspect]
  12. FOSAMAX [Suspect]
  13. LIPITOR [Concomitant]
     Dosage: 40 MG, QD
  14. AMBIEN [Concomitant]
  15. AREDIA [Suspect]
  16. FEMARA [Concomitant]
     Dosage: 2.5 MG, QD
  17. PLAVIX [Concomitant]
     Dosage: 75 MG, QD
  18. HYDROCHLOROTHIAZIDE [Concomitant]
     Dosage: 25 MG, QD
  19. TOBRAMYCIN [Concomitant]

REACTIONS (53)
  - SYNCOPE [None]
  - PARTIAL SEIZURES [None]
  - PHARYNGITIS [None]
  - OESOPHAGITIS [None]
  - PSEUDOMONAS INFECTION [None]
  - RADICULOPATHY [None]
  - CHOLELITHIASIS [None]
  - ADENOMA BENIGN [None]
  - GASTROINTESTINAL HAEMORRHAGE [None]
  - FATIGUE [None]
  - PARALYSIS [None]
  - DEFORMITY [None]
  - ORAL CAVITY FISTULA [None]
  - SMALL INTESTINAL OBSTRUCTION [None]
  - ARRHYTHMIA [None]
  - GALLBLADDER DISORDER [None]
  - HIATUS HERNIA [None]
  - HYPERCALCAEMIA [None]
  - DIVERTICULITIS [None]
  - OSTEOMYELITIS [None]
  - LARYNGOTRACHEAL OEDEMA [None]
  - HYPERTENSION [None]
  - CHOLECYSTITIS CHRONIC [None]
  - VERTIGO [None]
  - COMA [None]
  - EMOTIONAL DISTRESS [None]
  - PAIN IN JAW [None]
  - LUNG NEOPLASM [None]
  - CHRONIC OBSTRUCTIVE PULMONARY DISEASE [None]
  - DIVERTICULUM [None]
  - INTERVERTEBRAL DISC DEGENERATION [None]
  - CELLULITIS [None]
  - INFECTION [None]
  - ANXIETY [None]
  - DIARRHOEA [None]
  - GASTRIC ULCER [None]
  - TACHYCARDIA [None]
  - OSTEONECROSIS OF JAW [None]
  - PHYSICAL DISABILITY [None]
  - DYSPHAGIA [None]
  - DIZZINESS [None]
  - VENTRICULAR HYPERTROPHY [None]
  - ANAEMIA [None]
  - URINARY TRACT INFECTION [None]
  - ABDOMINAL PAIN UPPER [None]
  - PAIN [None]
  - VOMITING [None]
  - CENTRAL NERVOUS SYSTEM LESION [None]
  - RENAL FAILURE [None]
  - PERIPHERAL ARTERIAL OCCLUSIVE DISEASE [None]
  - ARTERIOSCLEROSIS OBLITERANS [None]
  - GASTRITIS [None]
  - HYPOTENSION [None]
